FAERS Safety Report 6228243-5 (Version None)
Quarter: 2009Q2

REPORT INFORMATION
  Report Type: 
  Country: None (occurrence: None)
  Receive Date: 20090612
  Receipt Date: 20090602
  Transmission Date: 20091009
  Serious: Yes (Hospitalization, Other)
  Sender: FDA-Public Use
  Company Number: PT-JNJCH-2009015516

PATIENT
  Age: 30 Year
  Sex: Female

DRUGS (1)
  1. ACTIFED [Suspect]
     Indication: RHINORRHOEA
     Dosage: TEXT:UNKNOWN
     Route: 065

REACTIONS (7)
  - C-REACTIVE PROTEIN INCREASED [None]
  - DERMATITIS [None]
  - FACE OEDEMA [None]
  - MALAISE [None]
  - NEUTROPHILIA [None]
  - PYREXIA [None]
  - RASH MACULO-PAPULAR [None]
